FAERS Safety Report 9142306 (Version 1)
Quarter: 2013Q1

REPORT INFORMATION
  Report Type: Spontaneous
  Country: US (occurrence: US)
  Receive Date: 20130306
  Receipt Date: 20130306
  Transmission Date: 20140127
  Serious: Yes (Other)
  Sender: FDA-Public Use
  Company Number: US-RANBAXY-2013US-65586

PATIENT
  Sex: Female

DRUGS (2)
  1. LORATADINE [Suspect]
     Indication: RASH PRURITIC
     Dosage: 10 MG, QD
     Route: 065
  2. ZYRTEC [Suspect]
     Indication: RASH
     Dosage: UNK
     Route: 065

REACTIONS (6)
  - Dry skin [Unknown]
  - Affect lability [Unknown]
  - Insomnia [Unknown]
  - Depression [Unknown]
  - Suicidal ideation [Unknown]
  - Off label use [Unknown]
